FAERS Safety Report 18355897 (Version 1)
Quarter: 2020Q4

REPORT INFORMATION
  Report Type: Report from Study
  Country: BR (occurrence: BR)
  Receive Date: 20201007
  Receipt Date: 20201007
  Transmission Date: 20210114
  Serious: Yes (Other)
  Sender: FDA-Public Use
  Company Number: NVSC2020BR265877

PATIENT
  Sex: Male

DRUGS (3)
  1. ENTRESTO [Suspect]
     Active Substance: SACUBITRIL\VALSARTAN
     Dosage: 50 MG, BID (24/ 26 MG, 1 TABLET IN THE MORNING ND 1 IN THE NIGHT)
     Route: 065
  2. CARVEDILOL. [Suspect]
     Active Substance: CARVEDILOL
     Indication: PRODUCT USED FOR UNKNOWN INDICATION
     Dosage: 25 MG
     Route: 065
  3. ENTRESTO [Suspect]
     Active Substance: SACUBITRIL\VALSARTAN
     Indication: PRODUCT USED FOR UNKNOWN INDICATION
     Dosage: 200 MG, UNKNOWN (97/103 MG)
     Route: 065

REACTIONS (10)
  - Blood pressure decreased [Unknown]
  - Dizziness [Recovered/Resolved]
  - Blindness [Recovered/Resolved]
  - Blindness unilateral [Unknown]
  - Visual impairment [Unknown]
  - Diarrhoea [Recovered/Resolved]
  - Blindness [Unknown]
  - Vomiting [Recovered/Resolved]
  - Dizziness postural [Unknown]
  - Blood pressure decreased [Recovered/Resolved]
